FAERS Safety Report 15261307 (Version 2)
Quarter: 2018Q3

REPORT INFORMATION
  Report Type: Spontaneous
  Country: BR (occurrence: BR)
  Receive Date: 20180809
  Receipt Date: 20180827
  Transmission Date: 20181010
  Serious: Yes (Other)
  Sender: FDA-Public Use
  Company Number: BR-GE HEALTHCARE LIFE SCIENCES-2018CSU002999

PATIENT

DRUGS (5)
  1. AMPICILLIN [Concomitant]
     Active Substance: AMPICILLIN
     Indication: INFECTION
     Dosage: 280 MG, TID
     Dates: start: 20180425, end: 20180430
  2. GENTAMYCIN                         /00047101/ [Concomitant]
     Active Substance: GENTAMICIN
     Indication: INFECTION
     Dosage: 11 MG, BID
     Dates: start: 20180425, end: 20180430
  3. OMNIPAQUE [Suspect]
     Active Substance: IOHEXOL
     Indication: TRANSPOSITION OF THE GREAT VESSELS
     Dosage: 20 ML, SINGLE
     Route: 013
     Dates: start: 20180424, end: 20180424
  4. ALPROSTADIL. [Concomitant]
     Active Substance: ALPROSTADIL
     Indication: PATENT DUCTUS ARTERIOSUS
     Dosage: 81 ?G CONTINUOUS, UNK
     Dates: start: 20180424
  5. SODIUM BICARBONATE. [Concomitant]
     Active Substance: SODIUM BICARBONATE
     Indication: METABOLIC ACIDOSIS
     Dosage: 17 ML, UNK
     Dates: start: 20180425

REACTIONS (2)
  - General physical health deterioration [Recovered/Resolved]
  - Renal impairment [Recovered/Resolved]

NARRATIVE: CASE EVENT DATE: 20180424
